FAERS Safety Report 7565641-1 (Version None)
Quarter: 2011Q2

REPORT INFORMATION
  Report Type: 
  Country: None (occurrence: None)
  Receive Date: 20110616
  Receipt Date: 20110531
  Transmission Date: 20111010
  Serious: Yes (Hospitalization)
  Sender: FDA-Public Use
  Company Number: VAL_00578_2011

PATIENT
  Sex: Male

DRUGS (11)
  1. PREDNISONE [Concomitant]
  2. BUMEX [Suspect]
     Indication: BLOOD PRESSURE
     Dosage: 1.5 MG BID
     Dates: start: 20090101, end: 20110418
  3. BUMEX [Suspect]
     Indication: RENAL FAILURE CHRONIC
     Dosage: 1.5 MG BID
     Dates: start: 20090101, end: 20110418
  4. ANTIHISTAMINES [Concomitant]
  5. STEROID [Concomitant]
  6. COLCHICINE [Suspect]
     Indication: GOUT
     Dosage: 0.6 MG QOD
     Dates: start: 20090101, end: 20110418
  7. LOSARTAN POTASSIUM [Suspect]
     Indication: BLOOD PRESSURE
     Dosage: 25 MG QD
     Dates: start: 20090101, end: 20110418
  8. ANAKINRA [Concomitant]
  9. KRYSTEXXA [Suspect]
     Indication: GOUT
     Dosage: SEE IMAGE
     Route: 042
     Dates: start: 20110321, end: 20110321
  10. KRYSTEXXA [Suspect]
     Indication: GOUT
     Dosage: SEE IMAGE
     Route: 042
     Dates: start: 20110307, end: 20110307
  11. KRYSTEXXA [Suspect]
     Indication: GOUT
     Dosage: SEE IMAGE
     Route: 042
     Dates: start: 20110404, end: 20110404

REACTIONS (5)
  - HEPATOTOXICITY [None]
  - RENAL FAILURE ACUTE [None]
  - MALAISE [None]
  - FATIGUE [None]
  - HEPATOCELLULAR INJURY [None]
